FAERS Safety Report 8226328-5 (Version None)
Quarter: 2012Q1

REPORT INFORMATION
  Report Type: 
  Country: None (occurrence: None)
  Receive Date: 20120321
  Receipt Date: 20120315
  Transmission Date: 20120608
  Serious: Yes (Other)
  Sender: FDA-Public Use
  Company Number: CN-ROCHE-1049532

PATIENT
  Age: 75 Year
  Sex: Female

DRUGS (3)
  1. ROCALTROL [Suspect]
     Indication: OSTEOPOROSIS
     Route: 048
     Dates: start: 20070101, end: 20120101
  2. ROCALTROL [Suspect]
     Route: 048
     Dates: start: 20120101
  3. FOSAMAX [Suspect]
     Indication: OSTEOPOROSIS
     Route: 048
     Dates: start: 20070101

REACTIONS (4)
  - PAIN [None]
  - PUBIC PAIN [None]
  - DRUG INEFFECTIVE [None]
  - MUSCLE SPASMS [None]
